FAERS Safety Report 6361989-7 (Version None)
Quarter: 2009Q3

REPORT INFORMATION
  Report Type: 
  Country: None (occurrence: None)
  Receive Date: 20090918
  Receipt Date: 20090909
  Transmission Date: 20100115
  Serious: Yes (Disabling)
  Sender: FDA-Public Use
  Company Number: JP-ABBOTT-09P-087-0590626-00

PATIENT
  Sex: Male
  Weight: 70 kg

DRUGS (3)
  1. CLARITH [Suspect]
     Indication: LUNG ABSCESS
     Route: 048
     Dates: start: 20080630, end: 20090727
  2. LAXATIVES [Concomitant]
     Indication: CONSTIPATION
     Dates: start: 20090729
  3. PURSENNID [Concomitant]
     Indication: CONSTIPATION
     Dosage: 2 TABLETS DAILY
     Route: 048
     Dates: start: 20090731, end: 20090802

REACTIONS (2)
  - PLEURAL EFFUSION [None]
  - RENAL FAILURE ACUTE [None]
